FAERS Safety Report 5597314-9 (Version None)
Quarter: 2007Q4

REPORT INFORMATION
  Report Type: 
  Country: None (occurrence: None)
  Receive Date: 20071221
  Receipt Date: 20071106
  Transmission Date: 20080405
  Serious: No
  Sender: FDA-Public Use
  Company Number: SPV1-2007-04871

PATIENT

DRUGS (2)
  1. VYVANSE [Suspect]
     Indication: ATTENTION DEFICIT/HYPERACTIVITY DISORDER
     Dosage: 30 MG, 1X/DAY:QD, ORAL
     Route: 048
  2. 381 (ADDERALL XR) (AMPHETAMINE ASPARTATE, AMPHETAMINE SULFATE, DEXTROA [Concomitant]

REACTIONS (2)
  - MANIA [None]
  - MOOD ALTERED [None]
